FAERS Safety Report 21498506 (Version 2)
Quarter: 2023Q1

REPORT INFORMATION
  Report Type: Spontaneous
  Country: BR (occurrence: BR)
  Receive Date: 20221024
  Receipt Date: 20230105
  Transmission Date: 20230418
  Serious: Yes (Life-Threatening, Other)
  Sender: FDA-Public Use
  Company Number: BR-PFIZER INC-PV202200086369

PATIENT
  Age: 21 Year
  Sex: Male

DRUGS (2)
  1. ENBREL [Suspect]
     Active Substance: ETANERCEPT
     Indication: Pustular psoriasis
     Dosage: 50 MG, (SECOND DOSE)
     Route: 065
     Dates: start: 202109
  2. ENBREL [Suspect]
     Active Substance: ETANERCEPT
     Dosage: 50 MILLIGRAM,  (SECOND DOSE)
     Route: 065
     Dates: start: 202109

REACTIONS (5)
  - Dermatitis exfoliative generalised [Recovering/Resolving]
  - Shock [Recovering/Resolving]
  - Acute kidney injury [Recovering/Resolving]
  - Drug ineffective [Recovering/Resolving]
  - Pustular psoriasis [Recovering/Resolving]
